FAERS Safety Report 12293378 (Version 2)
Quarter: 2016Q2

REPORT INFORMATION
  Report Type: Spontaneous
  Country: US (occurrence: US)
  Receive Date: 20160421
  Receipt Date: 20160523
  Transmission Date: 20160815
  Serious: Yes (Disabling, Other)
  Sender: FDA-Public Use
  Company Number: US-VIIV HEALTHCARE LIMITED-US2016055836

PATIENT
  Sex: Male

DRUGS (2)
  1. TRIUMEQ [Suspect]
     Active Substance: ABACAVIR SULFATE\DOLUTEGRAVIR SODIUM\LAMIVUDINE
     Indication: HIV INFECTION
     Dosage: UNK, U
  2. DILANTIN [Interacting]
     Active Substance: PHENYTOIN
     Indication: BIPOLAR DISORDER
     Dosage: UNK, U

REACTIONS (2)
  - Labelled drug-drug interaction medication error [Unknown]
  - Suicidal ideation [Unknown]
